FAERS Safety Report 9675736 (Version 2)
Quarter: 2013Q4

REPORT INFORMATION
  Report Type: Report from Study
  Country: US (occurrence: US)
  Receive Date: 20131107
  Receipt Date: 20131121
  Transmission Date: 20140711
  Serious: Yes (Hospitalization)
  Sender: FDA-Public Use
  Company Number: US-ACTELION-A-NJ2013-90680

PATIENT
  Age: 46 Year
  Sex: Female

DRUGS (3)
  1. VELETRI [Suspect]
     Indication: PULMONARY ARTERIAL HYPERTENSION
     Dosage: 30 NG/KG, PER MIN
     Route: 041
     Dates: start: 20130516
  2. TRACLEER [Concomitant]
     Indication: PULMONARY ARTERIAL HYPERTENSION
     Dosage: UNK
     Route: 048
  3. COUMADIN [Concomitant]

REACTIONS (9)
  - Device related infection [Unknown]
  - Catheter site discharge [Unknown]
  - Pain [Unknown]
  - Pruritus [Unknown]
  - Rash papular [Unknown]
  - Rash [Unknown]
  - Skin exfoliation [Unknown]
  - Chills [Unknown]
  - Catheter site abscess [Unknown]
